FAERS Safety Report 5610996-8 (Version None)
Quarter: 2008Q1

REPORT INFORMATION
  Report Type: 
  Country: None (occurrence: None)
  Receive Date: 20080201
  Receipt Date: 20080123
  Transmission Date: 20080703
  Serious: Yes (Congenital Anomaly)
  Sender: FDA-Public Use
  Company Number: A0706445A

PATIENT
  Sex: Male
  Weight: 2.6 kg

DRUGS (4)
  1. COMBIVIR [Suspect]
     Indication: HIV INFECTION
     Dosage: 2TAB PER DAY
     Dates: start: 20070803, end: 20080103
  2. RETROVIR [Suspect]
     Indication: HIV INFECTION
     Dates: start: 20080103, end: 20080103
  3. VIRACEPT [Concomitant]
     Indication: HIV INFECTION
     Dosage: 2500MG PER DAY
     Dates: start: 20070803, end: 20071015
  4. KALETRA [Concomitant]
     Indication: HIV INFECTION
     Dates: start: 20071016, end: 20080103

REACTIONS (2)
  - DRUG EXPOSURE DURING PREGNANCY [None]
  - GASTRIC PERFORATION [None]
